FAERS Safety Report 19769789 (Version 1)
Quarter: 2021Q3

REPORT INFORMATION
  Report Type: Report from Study
  Country: IT (occurrence: IT)
  Receive Date: 20210831
  Receipt Date: 20210831
  Transmission Date: 20211014
  Serious: Yes (Hospitalization)
  Sender: FDA-Public Use
  Company Number: IT-TEVA-2021-IT-1945854

PATIENT
  Age: 85 Year
  Sex: Male

DRUGS (12)
  1. CARTEOL 10 MG/ML COLLIRIO, SOLUZIONE [Concomitant]
     Dosage: 1 GTT
  2. MIRTAZAPINE. [Concomitant]
     Active Substance: MIRTAZAPINE
     Dosage: 30 MG
  3. BISOPROLOL HEMIFUMARATE [Concomitant]
     Active Substance: BISOPROLOL FUMARATE
     Dosage: 10 MG
  4. PREGABALIN. [Concomitant]
     Active Substance: PREGABALIN
     Dosage: 25 MG
  5. PRADAXA [Concomitant]
     Active Substance: DABIGATRAN ETEXILATE MESYLATE
  6. LASIX [Concomitant]
     Active Substance: FUROSEMIDE
  7. RIVOTRIL [Concomitant]
     Active Substance: CLONAZEPAM
     Dosage: 2 GTT
  8. PLAVIX [Concomitant]
     Active Substance: CLOPIDOGREL BISULFATE
  9. ENTRESTO [Concomitant]
     Active Substance: SACUBITRIL\VALSARTAN
  10. BISOPROLOL HEMIFUMARATE [Concomitant]
     Active Substance: BISOPROLOL FUMARATE
     Dosage: 10 MG
  11. TORVAST [Concomitant]
     Active Substance: ATORVASTATIN
     Dosage: 80 MG
  12. METFORMIN HYDROCHLORIDE. [Suspect]
     Active Substance: METFORMIN HYDROCHLORIDE
     Dosage: 500 MG
     Route: 048
     Dates: start: 20210101, end: 20210519

REACTIONS (1)
  - Blood creatine increased [Not Recovered/Not Resolved]

NARRATIVE: CASE EVENT DATE: 20210519
